FAERS Safety Report 7042470-9 (Version None)
Quarter: 2010Q4

REPORT INFORMATION
  Report Type: 
  Country: None (occurrence: None)
  Receive Date: 20101013
  Receipt Date: 20100316
  Transmission Date: 20110411
  Serious: No
  Sender: FDA-Public Use
  Company Number: US-ASTRAZENECA-2010SE11704

PATIENT
  Age: 83 Year
  Sex: Female
  Weight: 56.7 kg

DRUGS (7)
  1. SYMBICORT [Suspect]
     Indication: DYSPNOEA
     Dosage: 2 PUFFS IN THE MORNING AND EVENING
     Route: 055
     Dates: start: 20100309, end: 20100316
  2. NEXIUM [Suspect]
     Route: 048
  3. BISOPROLOL [Concomitant]
  4. CLORAZEPATE DIPOTASSIUM [Concomitant]
  5. CARDIZEM CD [Concomitant]
  6. SIMVASTATIN [Concomitant]
  7. PROPAFENONE HCL [Concomitant]

REACTIONS (3)
  - HAEMOPTYSIS [None]
  - INSOMNIA [None]
  - MYALGIA [None]
